FAERS Safety Report 5062780-4 (Version None)
Quarter: 2006Q3

REPORT INFORMATION
  Report Type: 
  Country: None (occurrence: None)
  Receive Date: 20060724
  Receipt Date: 20060724
  Transmission Date: 20061208
  Serious: Yes (Life-Threatening, Hospitalization)
  Sender: FDA-Public Use
  Company Number: None

PATIENT
  Sex: Male

DRUGS (3)
  1. ABCIXIMAB  2 MG/ML [Suspect]
     Indication: CATHETERISATION CARDIAC
     Dosage: 0.125  MG/KG/MIN  IV DRIP
     Route: 041
     Dates: start: 20060417, end: 20060417
  2. CLOPIDOGREL [Concomitant]
  3. ASPIRIN [Concomitant]

REACTIONS (1)
  - UPPER GASTROINTESTINAL HAEMORRHAGE [None]
